FAERS Safety Report 7543903-1 (Version None)
Quarter: 2011Q2

REPORT INFORMATION
  Report Type: 
  Country: None (occurrence: None)
  Receive Date: 20110613
  Receipt Date: 20110606
  Transmission Date: 20111010
  Serious: Yes (Death)
  Sender: FDA-Public Use
  Company Number: US-CELGENEUS-163-21880-11060870

PATIENT
  Age: 70 Year
  Sex: Male

DRUGS (17)
  1. REVLIMID [Suspect]
     Dosage: 15 MILLIGRAM
     Route: 048
     Dates: start: 20080901, end: 20081001
  2. APAP TAB [Concomitant]
     Route: 065
  3. OMEPRAZOLE [Concomitant]
     Route: 065
  4. ALLOPURINOL [Concomitant]
     Route: 065
  5. REVLIMID [Suspect]
     Dosage: 15-10MG
     Route: 048
     Dates: start: 20081001
  6. MORPHINE [Concomitant]
     Route: 065
  7. REVLIMID [Suspect]
     Indication: MULTIPLE MYELOMA
     Dosage: 10 MILLIGRAM
     Route: 048
     Dates: start: 20080701, end: 20080901
  8. REVLIMID [Suspect]
     Dosage: 25 MILLIGRAM
     Route: 048
     Dates: start: 20091001
  9. HALOPERIDOL [Concomitant]
     Route: 065
  10. GLIPIZIDE [Concomitant]
     Route: 065
  11. ASPIRIN [Concomitant]
     Route: 065
  12. CARVEDILOL [Concomitant]
     Route: 065
  13. REVLIMID [Suspect]
     Route: 048
     Dates: start: 20100101
  14. POTASSIUM CHLORIDE [Concomitant]
     Route: 065
  15. LORAZEPAM [Concomitant]
     Route: 065
  16. TERAZOSIN HCL [Concomitant]
     Route: 065
  17. FUROSEMIDE [Concomitant]
     Route: 065

REACTIONS (4)
  - DISEASE PROGRESSION [None]
  - BLOOD CREATININE INCREASED [None]
  - DEATH [None]
  - ACUTE MYOCARDIAL INFARCTION [None]
